FAERS Safety Report 6169567-X (Version None)
Quarter: 2009Q2

REPORT INFORMATION
  Report Type: 
  Country: None (occurrence: None)
  Receive Date: 20090424
  Receipt Date: 20081219
  Transmission Date: 20091009
  Serious: No
  Sender: FDA-Public Use
  Company Number: SPV1-2008-02817

PATIENT
  Sex: Female

DRUGS (1)
  1. VYVANSE [Suspect]
     Dosage: ORAL
     Route: 048

REACTIONS (2)
  - BLOOD PRESSURE INCREASED [None]
  - VICTIM OF CRIME [None]
